FAERS Safety Report 7012474-0 (Version None)
Quarter: 2010Q3

REPORT INFORMATION
  Report Type: 
  Country: None (occurrence: None)
  Receive Date: 20100924
  Receipt Date: 20100923
  Transmission Date: 20110219
  Serious: Yes (Life-Threatening, Hospitalization, Other)
  Sender: FDA-Public Use
  Company Number: GB-WYE-G06713610

PATIENT
  Age: 34 Year
  Sex: Male
  Weight: 103 kg

DRUGS (4)
  1. TAZOCIN [Suspect]
     Indication: SEPSIS
     Dosage: 4.5G FREQUENCY UNKNOWN
     Route: 042
     Dates: start: 20100907, end: 20100907
  2. MS CONTIN [Concomitant]
     Dosage: 40MG FREQUENCY UNKNOWN
     Route: 048
     Dates: start: 20100906
  3. PREGABALIN [Concomitant]
     Indication: PAIN
     Dosage: 300MG FREQUENCY UNKNOWN
     Route: 048
     Dates: start: 20100906
  4. AMITRIPTYLINE HCL [Concomitant]
     Indication: PAIN
     Dosage: 50MG FREQUENCY UNKNOWN
     Route: 048
     Dates: start: 20100906

REACTIONS (2)
  - HAEMOGLOBIN DECREASED [None]
  - RASH VESICULAR [None]
